FAERS Safety Report 8033220-8 (Version None)
Quarter: 2012Q1

REPORT INFORMATION
  Report Type: 
  Country: None (occurrence: None)
  Receive Date: 20120110
  Receipt Date: 20111230
  Transmission Date: 20120608
  Serious: Yes (Hospitalization)
  Sender: FDA-Public Use
  Company Number: US-SANOFI-AVENTIS-2011SA071396

PATIENT
  Age: 68 Year
  Sex: Female

DRUGS (10)
  1. CLOPIDOGREL BISULFATE [Suspect]
     Dates: start: 20110324, end: 20111007
  2. AMARYL [Concomitant]
  3. CHOLESTEROL- AND TRIGLYCERIDE REDUCERS [Concomitant]
     Dates: start: 20110324
  4. ANTITHROMBOTIC AGENTS [Concomitant]
     Route: 048
     Dates: start: 20110324
  5. CLOPIDOGREL BISULFATE [Suspect]
     Dates: start: 20111001
  6. BETA BLOCKING AGENTS [Concomitant]
     Dates: start: 20110324
  7. METFORMIN HCL [Concomitant]
  8. ACE INHIBITOR NOS [Concomitant]
  9. ASPIRIN [Suspect]
     Dates: start: 20110324
  10. ALL OTHER THERAPEUTIC PRODUCTS [Concomitant]
     Dates: start: 20110324

REACTIONS (5)
  - GASTROINTESTINAL HAEMORRHAGE [None]
  - MICROCYTIC ANAEMIA [None]
  - HERNIA [None]
  - GASTRITIS EROSIVE [None]
  - DYSPNOEA [None]
